FAERS Safety Report 9786056 (Version 4)
Quarter: 2014Q3

REPORT INFORMATION
  Report Type: Spontaneous
  Country: US (occurrence: US)
  Receive Date: 20131227
  Receipt Date: 20140821
  Transmission Date: 20150326
  Serious: Yes (Other)
  Sender: FDA-Public Use
  Company Number: US-BAYER-2013-156445

PATIENT
  Age: 28 Year
  Sex: Female
  Weight: 91.61 kg

DRUGS (3)
  1. LANTUS [Concomitant]
     Active Substance: INSULIN GLARGINE
     Indication: DIABETES MELLITUS
     Route: 058
  2. MIRENA [Suspect]
     Active Substance: LEVONORGESTREL
     Indication: CONTRACEPTION
     Dosage: 20 MCG/24HR, CONT
     Route: 015
     Dates: start: 20110525
  3. HUMALOG [Concomitant]
     Active Substance: INSULIN LISPRO
     Indication: DIABETES MELLITUS
     Route: 058

REACTIONS (9)
  - Postoperative ileus [None]
  - Pregnancy with contraceptive device [Recovered/Resolved]
  - Vaginal haemorrhage [None]
  - Diabetes mellitus inadequate control [None]
  - Mastitis postpartum [None]
  - Device expulsion [None]
  - Premature labour [None]
  - Drug ineffective [None]
  - Menorrhagia [None]

NARRATIVE: CASE EVENT DATE: 20111207
